FAERS Safety Report 14045388 (Version 1)
Quarter: 2017Q4

REPORT INFORMATION
  Report Type: Spontaneous
  Country: US (occurrence: US)
  Receive Date: 20171005
  Receipt Date: 20171005
  Transmission Date: 20180321
  Serious: Yes (Death)
  Sender: FDA-Public Use
  Company Number: US-ROCHE-2001386

PATIENT
  Age: 79 Year
  Sex: Female

DRUGS (1)
  1. CELLCEPT [Suspect]
     Active Substance: MYCOPHENOLATE MOFETIL\MYCOPHENOLATE MOFETIL HYDROCHLORIDE
     Indication: MALAISE
     Route: 048
     Dates: start: 20170216, end: 20170928

REACTIONS (1)
  - Death [Fatal]

NARRATIVE: CASE EVENT DATE: 20170928
